FAERS Safety Report 7823603-0 (Version None)
Quarter: 2011Q4

REPORT INFORMATION
  Report Type: 
  Country: None (occurrence: None)
  Receive Date: 20111019
  Receipt Date: 20111013
  Transmission Date: 20120403
  Serious: Yes (Other)
  Sender: FDA-Public Use
  Company Number: US-PFIZER INC-2011245065

PATIENT
  Age: 74 Year
  Sex: Female
  Weight: 53.061 kg

DRUGS (5)
  1. REVATIO [Suspect]
     Dosage: UNK
  2. TREPROSTINIL SODIUM [Suspect]
     Indication: PULMONARY ARTERIAL HYPERTENSION
     Dosage: 18 UG, 4X/DAY
     Dates: start: 20110527
  3. TREPROSTINIL SODIUM [Suspect]
     Dosage: 18 UG, 3X/DAY
     Dates: start: 20110920
  4. LETAIRIS [Suspect]
     Dosage: UNK
  5. COUMADIN [Concomitant]
     Dosage: UNK

REACTIONS (6)
  - HYPERTENSION [None]
  - DIARRHOEA [None]
  - NAUSEA [None]
  - OEDEMA PERIPHERAL [None]
  - DYSPNOEA [None]
  - LOCALISED OEDEMA [None]
